FAERS Safety Report 4596818-5 (Version None)
Quarter: 2005Q1

REPORT INFORMATION
  Report Type: 
  Country: None (occurrence: None)
  Receive Date: 20050228
  Receipt Date: 20050216
  Transmission Date: 20050727
  Serious: Yes (Hospitalization)
  Sender: FDA-Public Use
  Company Number: 2005SE00961

PATIENT
  Sex: Female

DRUGS (3)
  1. OMEPRAZOLE [Suspect]
  2. MAREVAN [Suspect]
     Indication: CORONARY ARTERY DISEASE
  3. CELEBRA [Suspect]
     Indication: CORONARY ARTERY DISEASE

REACTIONS (3)
  - DRUG INTERACTION [None]
  - GASTRIC ULCER HAEMORRHAGE [None]
  - INTERNATIONAL NORMALISED RATIO INCREASED [None]
